FAERS Safety Report 8295648-0 (Version None)
Quarter: 2012Q2

REPORT INFORMATION
  Report Type: 
  Country: None (occurrence: None)
  Receive Date: 20120418
  Receipt Date: 20120411
  Transmission Date: 20120825
  Serious: Yes (Hospitalization, Other)
  Sender: FDA-Public Use
  Company Number: US-MERCK-1109USA00704

PATIENT
  Age: 59 Year
  Sex: Female
  Weight: 60 kg

DRUGS (12)
  1. FOSAMAX [Suspect]
     Route: 048
     Dates: start: 20081001, end: 20090101
  2. PREMARIN [Concomitant]
     Route: 065
  3. LIPITOR [Concomitant]
     Indication: BLOOD CHOLESTEROL INCREASED
     Route: 065
     Dates: start: 20070101, end: 20080101
  4. NORVASC [Concomitant]
     Route: 065
  5. ALENDRONATE SODIUM [Suspect]
     Route: 065
  6. MEVACOR [Concomitant]
     Indication: HYPERCHOLESTEROLAEMIA
     Route: 048
  7. ALTACE [Concomitant]
     Route: 065
  8. PREMPRO [Concomitant]
     Route: 065
  9. HYDROCHLOROTHIAZIDE [Concomitant]
     Route: 065
  10. ACCUPRIL [Concomitant]
     Route: 065
  11. FOSAMAX [Suspect]
     Indication: OSTEOPENIA
     Route: 048
     Dates: start: 19960101, end: 20080901
  12. AMLODIPINE [Concomitant]
     Route: 065

REACTIONS (47)
  - GASTROINTESTINAL DISORDER [None]
  - OSTEOPOROSIS [None]
  - MITRAL VALVE INCOMPETENCE [None]
  - FRACTURE NONUNION [None]
  - DEVICE FAILURE [None]
  - INCREASED TENDENCY TO BRUISE [None]
  - GINGIVAL DISORDER [None]
  - PYREXIA [None]
  - CARDIAC MURMUR [None]
  - PAIN IN EXTREMITY [None]
  - UTERINE HAEMORRHAGE [None]
  - PRESYNCOPE [None]
  - LARGE INTESTINAL HAEMORRHAGE [None]
  - SHOCK HAEMORRHAGIC [None]
  - ADVERSE EVENT [None]
  - DYSPHONIA [None]
  - DIARRHOEA [None]
  - COUGH [None]
  - BREAST CANCER [None]
  - HYPERTROPHIC ANAL PAPILLA [None]
  - SPUTUM DISCOLOURED [None]
  - OSTEOARTHRITIS [None]
  - LOW TURNOVER OSTEOPATHY [None]
  - CAROTID BRUIT [None]
  - DIVERTICULUM INTESTINAL [None]
  - MYOCARDIAL INFARCTION [None]
  - OVERDOSE [None]
  - CORONARY ARTERY DISEASE [None]
  - PHARYNGITIS [None]
  - LEFT VENTRICULAR HYPERTROPHY [None]
  - LARYNGITIS [None]
  - BLOOD PRESSURE SYSTOLIC DECREASED [None]
  - FEMUR FRACTURE [None]
  - HAEMATOCRIT DECREASED [None]
  - PAIN [None]
  - THIRST [None]
  - RENAL FAILURE [None]
  - COLONIC POLYP [None]
  - DYSPNOEA [None]
  - EPISTAXIS [None]
  - FEMORAL BRUIT [None]
  - FALL [None]
  - SINUS CONGESTION [None]
  - ANAEMIA [None]
  - CORONARY OSTIAL STENOSIS [None]
  - NOCTURIA [None]
  - KYPHOSCOLIOSIS [None]
